FAERS Safety Report 22223941 (Version 1)
Quarter: 2023Q2

REPORT INFORMATION
  Report Type: Spontaneous
  Country: US (occurrence: US)
  Receive Date: 20230418
  Receipt Date: 20230418
  Transmission Date: 20230721
  Serious: No
  Sender: FDA-Public Use
  Company Number: US-BIOVITRUM-2023-US-009228

PATIENT
  Age: 1 Year
  Sex: Male
  Weight: 7.7 kg

DRUGS (3)
  1. SYNAGIS [Suspect]
     Active Substance: PALIVIZUMAB
     Indication: Chronic respiratory disease
     Dosage: MONTHLY
     Route: 030
     Dates: start: 20221227
  2. SYNAGIS [Suspect]
     Active Substance: PALIVIZUMAB
     Indication: Premature baby
  3. VITAMINS [Concomitant]
     Active Substance: VITAMINS
     Indication: Product used for unknown indication
     Dosage: 9 MG/15 ML LIQUID

REACTIONS (1)
  - Ear infection [Unknown]

NARRATIVE: CASE EVENT DATE: 20230408
